FAERS Safety Report 6166065-4 (Version None)
Quarter: 2009Q2

REPORT INFORMATION
  Report Type: 
  Country: None (occurrence: None)
  Receive Date: 20090424
  Receipt Date: 20090415
  Transmission Date: 20091009
  Serious: Yes (Other)
  Sender: FDA-Public Use
  Company Number: US-JNJFOC-20090403837

PATIENT
  Sex: Female
  Weight: 77.11 kg

DRUGS (8)
  1. REMICADE [Suspect]
     Indication: RHEUMATOID ARTHRITIS
     Route: 042
  2. TRANDOLAPRIL [Concomitant]
     Indication: HYPERTENSION
  3. PREDNISONE [Concomitant]
     Indication: RHEUMATOID ARTHRITIS
  4. IMURAN [Concomitant]
     Indication: RHEUMATOID ARTHRITIS
  5. XANAX [Concomitant]
     Indication: ANXIETY
  6. PREVACID [Concomitant]
     Indication: GASTROOESOPHAGEAL REFLUX DISEASE
  7. TRIAZOLAM [Concomitant]
     Indication: INSOMNIA
  8. DYAZIDE [Concomitant]

REACTIONS (3)
  - AMNESIA [None]
  - CONFUSIONAL STATE [None]
  - HEADACHE [None]
